FAERS Safety Report 8061908-1 (Version None)
Quarter: 2012Q1

REPORT INFORMATION
  Report Type: 
  Country: None (occurrence: None)
  Receive Date: 20120123
  Receipt Date: 20111020
  Transmission Date: 20120608
  Serious: Yes (Other)
  Sender: FDA-Public Use
  Company Number: CA-JNJFOC-20120106104

PATIENT
  Sex: Male
  Weight: 79.4 kg

DRUGS (1)
  1. REMICADE [Suspect]
     Indication: COLITIS ULCERATIVE
     Dosage: 4 VIALS
     Route: 042

REACTIONS (2)
  - BLOOD BLISTER [None]
  - TENDON RUPTURE [None]
